FAERS Safety Report 15171005 (Version 1)
Quarter: 2018Q3

REPORT INFORMATION
  Report Type: Spontaneous
  Country: PL (occurrence: PL)
  Receive Date: 20180720
  Receipt Date: 20180720
  Transmission Date: 20181010
  Serious: Yes (Life-Threatening, Hospitalization)
  Sender: FDA-Public Use
  Company Number: PL-MYLANLABS-2018M1052191

PATIENT
  Age: 5 Year
  Sex: Female
  Weight: 20 kg

DRUGS (2)
  1. LIDOCAINE. [Suspect]
     Active Substance: LIDOCAINE
     Indication: LOCAL ANAESTHESIA
     Dosage: 1% LIDOCAINE, SUPPLEMENTED WITH EPINEPHRINE AT THE RATIO OF 1:200000 LIDOCAINE:EPINEPHRINE. THE T...
     Route: 065
  2. ADRENALINE                         /00003901/ [Concomitant]
     Active Substance: EPINEPHRINE
     Indication: SUPPLEMENTATION THERAPY
     Dosage: FOR SUPPLEMENTATION OF LIDOCAINE WITH EPINEPHRINE AT THE RATIO OF 1:200000 LIDOCAINE:EPINEPHRINE.
     Route: 065

REACTIONS (5)
  - Drug administration error [Recovered/Resolved]
  - Laryngospasm [Recovered/Resolved]
  - Peripheral nerve palsy [Recovered/Resolved]
  - Oxygen saturation decreased [Recovered/Resolved]
  - Bradycardia [Recovered/Resolved]
